FAERS Safety Report 13285709 (Version 1)
Quarter: 2017Q1

REPORT INFORMATION
  Report Type: Spontaneous
  Country: US (occurrence: US)
  Receive Date: 20170301
  Receipt Date: 20170301
  Transmission Date: 20170428
  Serious: Yes (Other)
  Sender: FDA-Public Use
  Company Number: None

PATIENT
  Age: 76 Year
  Sex: Female

DRUGS (1)
  1. IBRANCE [Suspect]
     Active Substance: PALBOCICLIB
     Indication: BREAST CANCER
     Dosage: FREQUENCY - ONCE DAILY FOR 21 DAYS, SKIP 7 DAYS
     Route: 048
     Dates: start: 20160712, end: 20170224

REACTIONS (1)
  - Disease progression [None]

NARRATIVE: CASE EVENT DATE: 20170224
